FAERS Safety Report 11036931 (Version 1)
Quarter: 2015Q2

REPORT INFORMATION
  Report Type: Spontaneous
  Country: None (occurrence: None)
  Receive Date: 20150415
  Receipt Date: 20150415
  Transmission Date: 20150821
  Serious: No
  Sender: FDA-Public Use
  Company Number: None

PATIENT
  Age: 57 Year
  Sex: Female
  Weight: 61.24 kg

DRUGS (2)
  1. SOTOAL [Concomitant]
  2. HYDROXYZINE [Suspect]
     Active Substance: HYDROXYZINE\HYDROXYZINE HYDROCHLORIDE
     Indication: SEASONAL ALLERGY
     Route: 048
     Dates: start: 20150407, end: 20150414

REACTIONS (10)
  - Muscular weakness [None]
  - Tremor [None]
  - Anger [None]
  - Agitation [None]
  - Anxiety [None]
  - Disturbance in attention [None]
  - Aura [None]
  - Depression [None]
  - Suicidal ideation [None]
  - Adverse event [None]

NARRATIVE: CASE EVENT DATE: 20150414
